FAERS Safety Report 14320985 (Version 1)
Quarter: 2017Q4

REPORT INFORMATION
  Report Type: Spontaneous
  Country: US (occurrence: US)
  Receive Date: 20171223
  Receipt Date: 20171223
  Transmission Date: 20180321
  Serious: Yes (Death, Life-Threatening, Hospitalization, Other)
  Sender: FDA-Public Use
  Company Number: US-SUN PHARMACEUTICAL INDUSTRIES LTD-2017US-157772

PATIENT
  Sex: Male

DRUGS (6)
  1. VINCRISTINE [Suspect]
     Active Substance: VINCRISTINE
     Indication: PRECURSOR B-LYMPHOBLASTIC LYMPHOMA
     Dosage: UNK
     Route: 065
     Dates: start: 201211
  2. PREDNISONE. [Suspect]
     Active Substance: PREDNISONE
     Indication: PRECURSOR B-LYMPHOBLASTIC LYMPHOMA
     Dosage: UNK
     Route: 065
     Dates: start: 201211
  3. METHOTREXATE. [Suspect]
     Active Substance: METHOTREXATE
     Indication: PRECURSOR B-LYMPHOBLASTIC LYMPHOMA
     Dosage: UNK
     Route: 037
     Dates: start: 201211
  4. CYTARABINE. [Suspect]
     Active Substance: CYTARABINE
     Indication: PRECURSOR B-LYMPHOBLASTIC LYMPHOMA
     Dosage: UNK
     Route: 037
     Dates: start: 201211
  5. ASPARAGINASE [Suspect]
     Active Substance: ASPARAGINASE
     Indication: PRECURSOR B-LYMPHOBLASTIC LYMPHOMA
     Dosage: UNK
     Route: 065
     Dates: start: 201211
  6. DAUNORUBICIN [Suspect]
     Active Substance: DAUNORUBICIN
     Indication: PRECURSOR B-LYMPHOBLASTIC LYMPHOMA
     Dosage: UNK
     Route: 065
     Dates: start: 201211

REACTIONS (4)
  - Pyrexia [Unknown]
  - Type 2 diabetes mellitus [Unknown]
  - Neutropenia [Unknown]
  - Myeloproliferative neoplasm [Fatal]

NARRATIVE: CASE EVENT DATE: 2016
